FAERS Safety Report 7519543-7 (Version None)
Quarter: 2011Q2

REPORT INFORMATION
  Report Type: 
  Country: None (occurrence: None)
  Receive Date: 20110602
  Receipt Date: 20110527
  Transmission Date: 20111010
  Serious: Yes (Death)
  Sender: FDA-Public Use
  Company Number: JP-PFIZER INC-2011072839

PATIENT
  Age: 88 Year
  Sex: Female

DRUGS (4)
  1. LEVOTHYROXINE SODIUM [Concomitant]
     Dosage: UNK
     Dates: start: 19991027, end: 20100523
  2. MOBIC [Concomitant]
     Dosage: UNK
     Route: 048
     Dates: start: 20080319
  3. ELCITONIN [Concomitant]
     Dosage: UNK
     Dates: start: 20030820, end: 20100523
  4. CELECOXIB [Suspect]
     Indication: OSTEOARTHRITIS
     Dosage: DAILY DOSE: 200MG
     Route: 048
     Dates: start: 20071204, end: 20080304

REACTIONS (1)
  - RENAL CELL CARCINOMA [None]
